FAERS Safety Report 9667451 (Version 1)
Quarter: 2013Q4

REPORT INFORMATION
  Report Type: Spontaneous
  Country: US (occurrence: US)
  Receive Date: 20131101
  Receipt Date: 20131101
  Transmission Date: 20140711
  Serious: Yes (Other)
  Sender: FDA-Public Use
  Company Number: US-SAVIENT-2012S1000052

PATIENT
  Age: 47 Year
  Sex: Male
  Weight: 102.97 kg

DRUGS (30)
  1. KRYSTEXXA INJECTION [Suspect]
     Indication: GOUT
     Route: 042
     Dates: start: 20120406, end: 20120406
  2. KRYSTEXXA INJECTION [Suspect]
     Indication: GOUT
     Route: 042
     Dates: start: 20120420, end: 20120420
  3. KRYSTEXXA INJECTION [Suspect]
     Indication: GOUT
     Route: 042
     Dates: start: 20120504, end: 20120504
  4. KRYSTEXXA INJECTION [Suspect]
     Indication: GOUT
     Route: 042
     Dates: start: 20120518, end: 20120518
  5. KRYSTEXXA INJECTION [Suspect]
     Indication: GOUT
     Route: 042
     Dates: start: 20120601, end: 20120601
  6. ALLEGRA [Concomitant]
     Indication: PREMEDICATION
     Dates: start: 20120405, end: 20120405
  7. ALLEGRA [Concomitant]
     Indication: PREMEDICATION
     Dates: start: 20120406, end: 20120406
  8. ALLEGRA [Concomitant]
     Indication: PREMEDICATION
     Dates: start: 20120419, end: 20120419
  9. ALLEGRA [Concomitant]
     Indication: PREMEDICATION
     Dates: start: 20120420, end: 20120420
  10. ALLEGRA [Concomitant]
     Indication: PREMEDICATION
     Dates: start: 20120503, end: 20120503
  11. ALLEGRA [Concomitant]
     Indication: PREMEDICATION
     Dates: start: 20120504, end: 20120504
  12. ALLEGRA [Concomitant]
     Indication: PREMEDICATION
     Dates: start: 20120517, end: 20120517
  13. ALLEGRA [Concomitant]
     Indication: PREMEDICATION
     Dates: start: 20120518, end: 20120518
  14. ALLEGRA [Concomitant]
     Indication: PREMEDICATION
     Dates: start: 20120531, end: 20120531
  15. ALLEGRA [Concomitant]
     Indication: PREMEDICATION
     Dates: start: 20120601, end: 20120601
  16. SOLU-CORTEF [Concomitant]
     Indication: PREMEDICATION
     Route: 042
     Dates: start: 20120406, end: 20120406
  17. SOLU-CORTEF [Concomitant]
     Indication: PREMEDICATION
     Route: 042
     Dates: start: 20120420, end: 20120420
  18. SOLU-CORTEF [Concomitant]
     Indication: PREMEDICATION
     Route: 042
     Dates: start: 20120504, end: 20120504
  19. SOLU-CORTEF [Concomitant]
     Indication: PREMEDICATION
     Route: 042
     Dates: start: 20120518, end: 20120518
  20. SOLU-CORTEF [Concomitant]
     Indication: PREMEDICATION
     Route: 042
     Dates: start: 20120601, end: 20120601
  21. TYLENOL /00020001/ [Concomitant]
     Indication: PREMEDICATION
     Route: 048
     Dates: start: 20120406, end: 20120406
  22. TYLENOL /00020001/ [Concomitant]
     Indication: PREMEDICATION
     Route: 048
     Dates: start: 20120420, end: 20120420
  23. TYLENOL /00020001/ [Concomitant]
     Indication: PREMEDICATION
     Route: 048
     Dates: start: 20120504, end: 20120504
  24. TYLENOL /00020001/ [Concomitant]
     Indication: PREMEDICATION
     Route: 048
     Dates: start: 20120518, end: 20120518
  25. TYLENOL /00020001/ [Concomitant]
     Indication: PREMEDICATION
     Route: 048
     Dates: start: 20120601, end: 20120601
  26. COLCHICINE [Concomitant]
     Indication: GOUT
  27. ASPIRIN [Concomitant]
     Indication: CARDIOVASCULAR EVENT PROPHYLAXIS
  28. METFORMIN [Concomitant]
     Indication: DIABETES MELLITUS
  29. COZAAR [Concomitant]
     Indication: PULMONARY HYPERTENSION
  30. PRAVACHOL [Concomitant]
     Indication: BLOOD CHOLESTEROL ABNORMAL

REACTIONS (2)
  - Infusion related reaction [Recovered/Resolved]
  - Therapeutic response decreased [Unknown]
